FAERS Safety Report 16004491 (Version 1)
Quarter: 2019Q1

REPORT INFORMATION
  Report Type: Spontaneous
  Country: AR (occurrence: AR)
  Receive Date: 20190226
  Receipt Date: 20190226
  Transmission Date: 20190418
  Serious: Yes (Death)
  Sender: FDA-Public Use
  Company Number: AR-BAXTER-2019BAX004025

PATIENT
  Age: 2 Month
  Sex: Female

DRUGS (1)
  1. DIANEAL PD-2 WITH DEXTROSE [Suspect]
     Active Substance: CALCIUM CHLORIDE\DEXTROSE\MAGNESIUM CHLORIDE\SODIUM CHLORIDE\SODIUM LACTATE
     Indication: ACUTE KIDNEY INJURY
     Route: 033
     Dates: start: 201812, end: 20190213

REACTIONS (1)
  - Death [Fatal]

NARRATIVE: CASE EVENT DATE: 20190213
